FAERS Safety Report 15208198 (Version 1)
Quarter: 2018Q3

REPORT INFORMATION
  Report Type: Spontaneous
  Country: US (occurrence: US)
  Receive Date: 20180628
  Receipt Date: 20180628
  Transmission Date: 20181010
  Serious: Yes (Death)
  Sender: FDA-Public Use
  Company Number: None

PATIENT
  Age: 57 Year
  Sex: Female

DRUGS (17)
  1. SYMBICORT [Concomitant]
     Active Substance: BUDESONIDE\FORMOTEROL FUMARATE DIHYDRATE
  2. CHRONULAE [Concomitant]
  3. FERROUS SULFATE. [Concomitant]
     Active Substance: FERROUS SULFATE
  4. TYLENOL [Concomitant]
     Active Substance: ACETAMINOPHEN
  5. APIXABAN [Suspect]
     Active Substance: APIXABAN
     Indication: DEEP VEIN THROMBOSIS
     Route: 048
     Dates: start: 20180319, end: 20180325
  6. ALBUTEROL INHALER [Concomitant]
     Active Substance: ALBUTEROL
  7. SYNTHROID [Concomitant]
     Active Substance: LEVOTHYROXINE SODIUM
  8. NORCO [Concomitant]
     Active Substance: ACETAMINOPHEN\HYDROCODONE BITARTRATE
  9. APIXABAN [Suspect]
     Active Substance: APIXABAN
     Route: 048
     Dates: start: 20180326, end: 20180529
  10. KLONOPIN [Concomitant]
     Active Substance: CLONAZEPAM
  11. ZINERTE [Concomitant]
  12. LIORESAL [Concomitant]
     Active Substance: BACLOFEN
  13. MYASTATIA OINTMENT [Concomitant]
  14. ZYPREXA [Concomitant]
     Active Substance: OLANZAPINE
  15. POTASSIUM CHLORIDE. [Concomitant]
     Active Substance: POTASSIUM CHLORIDE
  16. FISH OIL [Concomitant]
     Active Substance: FISH OIL
  17. LUNESTA [Concomitant]
     Active Substance: ESZOPICLONE

REACTIONS (2)
  - Pallor [None]
  - Unresponsive to stimuli [None]

NARRATIVE: CASE EVENT DATE: 20180529
